FAERS Safety Report 7549136-7 (Version None)
Quarter: 2011Q2

REPORT INFORMATION
  Report Type: 
  Country: None (occurrence: None)
  Receive Date: 20110615
  Receipt Date: 20110602
  Transmission Date: 20111010
  Serious: Yes (Hospitalization, Other)
  Sender: FDA-Public Use
  Company Number: PHEH2005US01799

PATIENT
  Sex: Female
  Weight: 55.102 kg

DRUGS (35)
  1. TOPROL-XL [Concomitant]
     Dosage: 50 MG, BID
  2. FENTANYL [Concomitant]
  3. AREDIA [Suspect]
     Dosage: 90 MG, QW4
     Route: 042
     Dates: start: 20001001, end: 20010701
  4. VITAMIN D [Concomitant]
  5. CHEMOTHERAPEUTICS NOS [Concomitant]
  6. HYDROCHLOROTHIAZIDE [Concomitant]
  7. NEURONTIN [Concomitant]
     Dosage: 400 MG, BID
  8. AVANDIA [Concomitant]
  9. RESTORIL [Concomitant]
  10. ATIVAN [Concomitant]
  11. PRILOSEC [Concomitant]
     Dosage: 40 MG, QD
  12. ASPIRIN [Concomitant]
  13. FOLIC ACID [Concomitant]
  14. COUMADIN [Concomitant]
  15. REVLIMID [Concomitant]
  16. ASPIRIN [Concomitant]
  17. PEPCID [Concomitant]
  18. ATARAX [Concomitant]
  19. DILAUDID [Concomitant]
  20. FOSAMAX [Concomitant]
     Dosage: UNK
     Dates: start: 20050811
  21. ZOCOR [Concomitant]
  22. DYAZIDE [Concomitant]
  23. TRIAMTERENE [Concomitant]
  24. CALCIUM CARBONATE [Concomitant]
  25. PLAVIX [Concomitant]
  26. LASIX [Concomitant]
  27. FERROUS SULFATE TAB [Concomitant]
  28. NEXIUM [Concomitant]
  29. ASCORBIC ACID [Concomitant]
  30. AVELOX [Concomitant]
  31. AREDIA [Suspect]
     Dosage: 90 MG, QW4
     Route: 042
     Dates: start: 20011201, end: 20050101
  32. EVISTA [Concomitant]
  33. GABAPENTIN [Concomitant]
  34. MULTI-VITAMINS [Concomitant]
  35. NORVASC [Concomitant]

REACTIONS (85)
  - BREATH ODOUR [None]
  - RASH ERYTHEMATOUS [None]
  - DEVICE RELATED INFECTION [None]
  - RENAL IMPAIRMENT [None]
  - DYSPNOEA EXERTIONAL [None]
  - SPINAL COMPRESSION FRACTURE [None]
  - BONE LOSS [None]
  - TACHYCARDIA [None]
  - LYMPHADENOPATHY [None]
  - DYSGEUSIA [None]
  - INTERVERTEBRAL DISC DEGENERATION [None]
  - DYSPHAGIA [None]
  - TRANSIENT ISCHAEMIC ATTACK [None]
  - MITRAL VALVE INCOMPETENCE [None]
  - KYPHOSCOLIOSIS [None]
  - COLONIC POLYP [None]
  - TOOTH ABSCESS [None]
  - ASTHENIA [None]
  - TONGUE DISCOLOURATION [None]
  - PAIN IN JAW [None]
  - NASAL POLYPS [None]
  - EPISTAXIS [None]
  - HEADACHE [None]
  - HEPATIC STEATOSIS [None]
  - OEDEMA MOUTH [None]
  - GINGIVAL RECESSION [None]
  - NEUROPATHY PERIPHERAL [None]
  - FEBRILE NEUTROPENIA [None]
  - HYPERPATHIA [None]
  - MUSCULAR WEAKNESS [None]
  - OEDEMA [None]
  - MYOPATHY [None]
  - FALL [None]
  - TONGUE OEDEMA [None]
  - PYREXIA [None]
  - PAIN IN EXTREMITY [None]
  - OSTEONECROSIS OF JAW [None]
  - BONE DISORDER [None]
  - ATELECTASIS [None]
  - INTERVERTEBRAL DISC PROTRUSION [None]
  - NASAL SEPTUM DEVIATION [None]
  - SOFT TISSUE DISORDER [None]
  - CAROTID ARTERY DISEASE [None]
  - CARDIAC VALVE SCLEROSIS [None]
  - RENAL CYST [None]
  - MUSCULOSKELETAL CHEST PAIN [None]
  - SINUSITIS [None]
  - DENTAL FISTULA [None]
  - SINUS POLYP [None]
  - BLOOD CREATININE INCREASED [None]
  - OSTEOPENIA [None]
  - UTERINE POLYP [None]
  - CATARACT [None]
  - DRY EYE [None]
  - RHINITIS ALLERGIC [None]
  - CERUMEN IMPACTION [None]
  - PHARYNGOESOPHAGEAL DIVERTICULUM [None]
  - HAEMORRHOIDS [None]
  - DIARRHOEA [None]
  - OROPHARYNGEAL PAIN [None]
  - OSTEOMYELITIS [None]
  - RENAL FAILURE [None]
  - PLASMACYTOSIS [None]
  - INFECTION [None]
  - LEFT ATRIAL DILATATION [None]
  - BACK PAIN [None]
  - CHRONIC OBSTRUCTIVE PULMONARY DISEASE [None]
  - AORTIC ANEURYSM [None]
  - DIVERTICULUM [None]
  - DENTAL CARIES [None]
  - DENTURE WEARER [None]
  - CANDIDIASIS [None]
  - PURULENT DISCHARGE [None]
  - OSTEOPOROSIS [None]
  - HYPERCHOLESTEROLAEMIA [None]
  - RIB FRACTURE [None]
  - KYPHOSIS [None]
  - OSTEOLYSIS [None]
  - SINUS BRADYCARDIA [None]
  - NAUSEA [None]
  - CEREBROVASCULAR ACCIDENT [None]
  - ANAEMIA [None]
  - TOOTH LOSS [None]
  - STOMATITIS [None]
  - GAIT DISTURBANCE [None]
